FAERS Safety Report 9299357 (Version 2)
Quarter: 2013Q3

REPORT INFORMATION
  Report Type: Spontaneous
  Country: US (occurrence: US)
  Receive Date: 20130520
  Receipt Date: 20130813
  Transmission Date: 20140515
  Serious: Yes (Hospitalization)
  Sender: FDA-Public Use
  Company Number: US-B.I. PHARMACEUTICALS,INC./RIDGEFIELD-2013-BI-13735BP

PATIENT
  Age: 85 Year
  Sex: Female
  Weight: 70.76 kg

DRUGS (11)
  1. PRADAXA [Suspect]
     Indication: ANTICOAGULANT THERAPY
     Dosage: 300 MG
     Route: 048
     Dates: start: 20111017, end: 20111101
  2. PRADAXA [Suspect]
     Indication: ATRIAL FIBRILLATION
  3. ALPRAZOLAM [Concomitant]
     Indication: ANXIETY
     Route: 048
     Dates: start: 20100913
  4. AMIODARONE [Concomitant]
     Dosage: 200 MG
     Route: 048
     Dates: start: 20091001
  5. CRESTOR [Concomitant]
     Dosage: 5 MG
     Route: 048
     Dates: start: 20111017
  6. DIOVAN HCT [Concomitant]
     Route: 048
     Dates: start: 20110509
  7. NASONEX [Concomitant]
     Dosage: 50 MCG
     Route: 045
     Dates: start: 20110608
  8. NORVASC [Concomitant]
     Dosage: 5 MG
     Route: 048
     Dates: start: 20110509
  9. PLAVIX [Concomitant]
     Dosage: 75 MG
     Route: 048
     Dates: start: 20110607, end: 20111031
  10. SYNTHROID [Concomitant]
     Dosage: 25 MCG
     Route: 048
     Dates: start: 20110915
  11. TOPROL-XL [Concomitant]
     Dosage: 25 MG
     Route: 048
     Dates: start: 20110708

REACTIONS (2)
  - Gastrointestinal haemorrhage [Unknown]
  - Haemorrhoidal haemorrhage [Unknown]
